FAERS Safety Report 6894118-1 (Version None)
Quarter: 2010Q3

REPORT INFORMATION
  Report Type: 
  Country: None (occurrence: None)
  Receive Date: 20100802
  Receipt Date: 20100727
  Transmission Date: 20110219
  Serious: Yes (Death)
  Sender: FDA-Public Use
  Company Number: FR-JNJFOC-20100707823

PATIENT
  Sex: Female

DRUGS (11)
  1. DURAGESIC-100 [Suspect]
     Indication: PSORIATIC ARTHROPATHY
     Route: 062
  2. DURAGESIC-100 [Suspect]
     Route: 062
  3. UNKNOWN MEDICATION [Concomitant]
  4. CYMBALTA [Concomitant]
  5. CELEBREX [Concomitant]
  6. NEXIUM [Concomitant]
  7. SALMETEROL [Concomitant]
  8. LYSANXIA [Concomitant]
  9. HAVLANE [Concomitant]
  10. LEVOTHYROXINE SODIUM [Concomitant]
  11. ALBUTEROL [Concomitant]

REACTIONS (10)
  - BLOOD PRESSURE DECREASED [None]
  - CARDIAC ARREST [None]
  - CEREBRAL DISORDER [None]
  - COMA [None]
  - DRUG DISPENSING ERROR [None]
  - MIOSIS [None]
  - MYDRIASIS [None]
  - OVERDOSE [None]
  - PNEUMONIA ASPIRATION [None]
  - PYREXIA [None]
